FAERS Safety Report 5148571-4 (Version None)
Quarter: 2006Q4

REPORT INFORMATION
  Report Type: 
  Country: None (occurrence: None)
  Receive Date: 20061107
  Receipt Date: 20061023
  Transmission Date: 20070319
  Serious: Yes (Other)
  Sender: FDA-Public Use
  Company Number: 2006SI009939

PATIENT
  Age: 40 Year
  Sex: Male
  Weight: 95.2554 kg

DRUGS (2)
  1. OMEPRAZOLE [Suspect]
     Indication: GASTROOESOPHAGEAL REFLUX DISEASE
     Dosage: 20MG ;QD;PO
     Route: 048
     Dates: start: 20060701, end: 20061017
  2. IBUPROFEN [Suspect]
     Indication: BACK PAIN
     Dosage: 800MG ;UNK; PO
     Route: 048
     Dates: start: 20060903, end: 20060910

REACTIONS (8)
  - ABDOMINAL PAIN UPPER [None]
  - BACK INJURY [None]
  - CHEST PAIN [None]
  - DRUG INEFFECTIVE [None]
  - GASTRIC DISORDER [None]
  - MUCOSAL HYPERAEMIA [None]
  - OESOPHAGEAL PAIN [None]
  - STOMACH DISCOMFORT [None]
